FAERS Safety Report 5759679-4 (Version None)
Quarter: 2008Q2

REPORT INFORMATION
  Report Type: 
  Country: None (occurrence: None)
  Receive Date: 20080605
  Receipt Date: 20080523
  Transmission Date: 20081010
  Serious: Yes (Hospitalization, Congenital Anomaly)
  Sender: FDA-Public Use
  Company Number: A0662907A

PATIENT
  Sex: Male

DRUGS (5)
  1. PAXIL [Suspect]
     Indication: DEPRESSION
     Dosage: 20MG PER DAY
     Dates: start: 19961118, end: 19970601
  2. VITAMIN TAB [Concomitant]
  3. IRON [Concomitant]
  4. PROZAC [Concomitant]
     Dates: start: 19961028, end: 19961118
  5. THYROID TAB [Concomitant]

REACTIONS (7)
  - ATRIAL SEPTAL DEFECT [None]
  - DRUG EXPOSURE DURING PREGNANCY [None]
  - FALLOT'S TETRALOGY [None]
  - LEARNING DISABILITY [None]
  - PATENT DUCTUS ARTERIOSUS [None]
  - PULMONARY VALVE STENOSIS [None]
  - VENTRICULAR SEPTAL DEFECT [None]
